FAERS Safety Report 11353503 (Version 1)
Quarter: 2015Q3

REPORT INFORMATION
  Report Type: Spontaneous
  Country: US (occurrence: US)
  Receive Date: 20150807
  Receipt Date: 20150807
  Transmission Date: 20151125
  Serious: No
  Sender: FDA-Public Use
  Company Number: US-JNJFOC-20150301052

PATIENT
  Age: 59 Year
  Sex: Female
  Weight: 58.51 kg

DRUGS (1)
  1. MENS ROGAINE EXTRA STRENGTH [Suspect]
     Active Substance: MINOXIDIL
     Indication: HAIR GROWTH ABNORMAL
     Dosage: QUARTER SIZE 1X PER DAY AT NIGHT
     Route: 061

REACTIONS (3)
  - Wrong patient received medication [Unknown]
  - Inappropriate schedule of drug administration [Unknown]
  - Product use issue [Unknown]
